FAERS Safety Report 19840229 (Version 1)
Quarter: 2021Q3

REPORT INFORMATION
  Report Type: Spontaneous
  Country: US (occurrence: US)
  Receive Date: 20210916
  Receipt Date: 20210916
  Transmission Date: 20211014
  Serious: Yes (Hospitalization, Other)
  Sender: FDA-Public Use
  Company Number: US-LUPIN PHARMACEUTICALS INC.-2021-17340

PATIENT
  Age: 75 Year
  Sex: Female

DRUGS (4)
  1. CALCIUM [Suspect]
     Active Substance: CALCIUM
     Indication: DYSPEPSIA
     Dosage: UNK, FORMULATION: CHEWS
     Route: 048
  2. CALCIUM [Suspect]
     Active Substance: CALCIUM
     Indication: OSTEOPOROSIS
     Dosage: UNK (TABLET)
     Route: 048
  3. ALUMINIUM/MAGNESIUM HYDROXIDE [Suspect]
     Active Substance: ALUMINUM HYDROXIDE\MAGNESIUM HYDROXIDE
     Indication: DYSPEPSIA
     Dosage: FORMULATION: LIQUID
     Route: 048
  4. OMEPRAZOLE. [Concomitant]
     Active Substance: OMEPRAZOLE
     Indication: GASTROOESOPHAGEAL REFLUX DISEASE
     Dosage: UNK
     Route: 065

REACTIONS (1)
  - Milk-alkali syndrome [Recovering/Resolving]
